FAERS Safety Report 6616054-8 (Version None)
Quarter: 2010Q1

REPORT INFORMATION
  Report Type: 
  Country: None (occurrence: None)
  Receive Date: 20100305
  Receipt Date: 20100224
  Transmission Date: 20100710
  Serious: Yes (Other)
  Sender: FDA-Public Use
  Company Number: US-AMGEN-QUU395288

PATIENT
  Sex: Male

DRUGS (16)
  1. NPLATE [Suspect]
     Indication: IDIOPATHIC THROMBOCYTOPENIC PURPURA
  2. RITUXAN [Concomitant]
  3. CYTOXAN [Concomitant]
  4. VINCRISTINE [Concomitant]
  5. BENADRYL [Concomitant]
  6. DEXAMETHASONE [Concomitant]
  7. ABACAVIR/LAMIVUDINE [Concomitant]
  8. VIRAMUNE [Concomitant]
  9. TENORMIN [Concomitant]
  10. WELLBUTRIN [Concomitant]
  11. ACTOS [Concomitant]
  12. METFORMIN [Concomitant]
  13. LIPITOR [Concomitant]
  14. TRICOR [Concomitant]
  15. DOXIL [Concomitant]
  16. RADIATION THERAPY [Concomitant]

REACTIONS (3)
  - GLYCOSYLATED HAEMOGLOBIN INCREASED [None]
  - OVERDOSE [None]
  - THROMBOCYTOSIS [None]
